FAERS Safety Report 6436175-2 (Version None)
Quarter: 2009Q4

REPORT INFORMATION
  Report Type: 
  Country: None (occurrence: None)
  Receive Date: 20091111
  Receipt Date: 20091102
  Transmission Date: 20100525
  Serious: Yes (Hospitalization)
  Sender: FDA-Public Use
  Company Number: FR-ROCHE-658809

PATIENT
  Sex: Male
  Weight: 56 kg

DRUGS (40)
  1. MYCOPHENOLATE MOFETIL [Suspect]
     Route: 048
     Dates: start: 20080718
  2. TACROLIMUS [Suspect]
     Route: 065
     Dates: start: 20080719, end: 20080719
  3. TACROLIMUS [Suspect]
     Route: 065
     Dates: start: 20080720, end: 20080720
  4. TACROLIMUS [Suspect]
     Route: 065
     Dates: start: 20080721, end: 20080721
  5. TACROLIMUS [Suspect]
     Route: 065
     Dates: start: 20080722, end: 20080726
  6. TACROLIMUS [Suspect]
     Route: 065
     Dates: start: 20080727, end: 20080727
  7. TACROLIMUS [Suspect]
     Route: 065
     Dates: start: 20080728, end: 20080728
  8. TACROLIMUS [Suspect]
     Route: 065
     Dates: start: 20080729, end: 20080729
  9. TACROLIMUS [Suspect]
     Route: 065
     Dates: start: 20080730, end: 20080730
  10. TACROLIMUS [Suspect]
     Route: 065
     Dates: start: 20080731, end: 20080731
  11. TACROLIMUS [Suspect]
     Route: 065
     Dates: start: 20080801, end: 20080804
  12. TACROLIMUS [Suspect]
     Route: 065
     Dates: start: 20080805, end: 20080806
  13. TACROLIMUS [Suspect]
     Route: 065
     Dates: start: 20080807, end: 20080807
  14. TACROLIMUS [Suspect]
     Route: 065
     Dates: start: 20080808, end: 20080819
  15. TACROLIMUS [Suspect]
     Route: 065
     Dates: start: 20080820, end: 20080820
  16. TACROLIMUS [Suspect]
     Route: 065
     Dates: start: 20080821, end: 20080904
  17. TACROLIMUS [Suspect]
     Route: 065
     Dates: start: 20080905, end: 20080905
  18. TACROLIMUS [Suspect]
     Route: 065
     Dates: start: 20080906, end: 20080912
  19. TACROLIMUS [Suspect]
     Route: 065
     Dates: start: 20080913, end: 20080924
  20. TACROLIMUS [Suspect]
     Route: 065
     Dates: start: 20080925, end: 20081015
  21. TACROLIMUS [Suspect]
     Route: 065
     Dates: start: 20081016, end: 20081120
  22. TACROLIMUS [Suspect]
     Route: 065
     Dates: start: 20081121, end: 20090121
  23. TACROLIMUS [Suspect]
     Route: 065
     Dates: start: 20090122, end: 20090122
  24. TACROLIMUS [Suspect]
     Route: 065
     Dates: start: 20090123, end: 20090304
  25. TACROLIMUS [Suspect]
     Route: 065
     Dates: start: 20090305, end: 20090409
  26. TACROLIMUS [Suspect]
     Route: 065
     Dates: start: 20090410, end: 20090513
  27. TACROLIMUS [Suspect]
     Route: 065
     Dates: start: 20090514, end: 20090716
  28. CORTANCYL [Suspect]
     Route: 065
     Dates: start: 20080719, end: 20080905
  29. CORTANCYL [Suspect]
     Route: 065
     Dates: start: 20080906, end: 20080912
  30. CORTANCYL [Suspect]
     Route: 065
     Dates: start: 20080913, end: 20080924
  31. CORTANCYL [Suspect]
     Route: 065
     Dates: start: 20080925, end: 20081016
  32. CORTANCYL [Suspect]
     Route: 065
     Dates: start: 20081017, end: 20081120
  33. CORTANCYL [Suspect]
     Route: 065
     Dates: start: 20081121, end: 20090122
  34. SOLU-MEDROL [Suspect]
     Route: 065
     Dates: start: 20080718, end: 20080718
  35. INIPOMP [Concomitant]
     Dates: start: 20080718
  36. AMLOR [Concomitant]
     Dates: start: 20080730
  37. FRAXIPARINE [Concomitant]
     Dates: start: 20080808
  38. CORDARONE [Concomitant]
     Dates: start: 20080719
  39. BUMEX [Concomitant]
     Dates: start: 20080719
  40. CIFLOX [Concomitant]
     Dates: start: 20080806

REACTIONS (1)
  - HEPATIC ARTERY STENOSIS [None]
